FAERS Safety Report 11800609 (Version 8)
Quarter: 2018Q1

REPORT INFORMATION
  Report Type: Report from Study
  Country: CA (occurrence: CA)
  Receive Date: 20151204
  Receipt Date: 20180218
  Transmission Date: 20180508
  Serious: Yes (Other)
  Sender: FDA-Public Use
  Company Number: CA-ROCHE-1662482

PATIENT
  Age: 70 Year
  Sex: Male

DRUGS (20)
  1. METHYLPREDNISOLONE. [Concomitant]
     Active Substance: METHYLPREDNISOLONE
     Indication: PREMEDICATION
     Route: 042
     Dates: start: 20151116
  2. FINASTERIDE. [Concomitant]
     Active Substance: FINASTERIDE
  3. RITUXAN [Suspect]
     Active Substance: RITUXIMAB
     Indication: RHEUMATOID ARTHRITIS
     Dosage: PREVIOUS INFUSION ON: 20/JUN/2017.
     Route: 042
     Dates: start: 20151116
  4. ATENOLOL. [Concomitant]
     Active Substance: ATENOLOL
  5. PANTOLOC [Concomitant]
     Active Substance: PANTOPRAZOLE SODIUM
  6. METHOTREXATE. [Concomitant]
     Active Substance: METHOTREXATE
  7. CYMBALTA [Suspect]
     Active Substance: DULOXETINE HYDROCHLORIDE
     Indication: PRODUCT USED FOR UNKNOWN INDICATION
     Route: 065
     Dates: start: 2015
  8. SULFASALAZINE. [Concomitant]
     Active Substance: SULFASALAZINE
  9. ALFUZOSIN [Concomitant]
     Active Substance: ALFUZOSIN
  10. DIPHENHYDRAMINE HCL [Concomitant]
     Active Substance: DIPHENHYDRAMINE HYDROCHLORIDE
     Indication: PREMEDICATION
     Route: 048
     Dates: start: 20151116
  11. ACETAMINOPHEN. [Concomitant]
     Active Substance: ACETAMINOPHEN
     Route: 048
     Dates: start: 20160922
  12. TOVIAZ [Concomitant]
     Active Substance: FESOTERODINE FUMARATE
  13. ACETAMINOPHEN. [Concomitant]
     Active Substance: ACETAMINOPHEN
     Indication: PREMEDICATION
     Route: 048
     Dates: start: 20151116
  14. CRESTOR [Concomitant]
     Active Substance: ROSUVASTATIN CALCIUM
  15. PROZAC [Concomitant]
     Active Substance: FLUOXETINE HYDROCHLORIDE
  16. PREDNISONE. [Concomitant]
     Active Substance: PREDNISONE
  17. RISEDRONATE [Concomitant]
     Active Substance: RISEDRONATE SODIUM
  18. ACETAMINOPHEN. [Concomitant]
     Active Substance: ACETAMINOPHEN
     Route: 048
     Dates: start: 20160205, end: 20160205
  19. FOLIC ACID. [Concomitant]
     Active Substance: FOLIC ACID
  20. RITUXAN [Suspect]
     Active Substance: RITUXIMAB
     Route: 042
     Dates: start: 20180126

REACTIONS (24)
  - Depression [Not Recovered/Not Resolved]
  - Arrhythmia [Not Recovered/Not Resolved]
  - Poor personal hygiene [Unknown]
  - Osteoarthritis [Unknown]
  - Oxygen saturation decreased [Unknown]
  - Blood pressure increased [Unknown]
  - Stomatitis [Unknown]
  - Rectal haemorrhage [Not Recovered/Not Resolved]
  - Spinal osteoarthritis [Not Recovered/Not Resolved]
  - Abdominal pain [Not Recovered/Not Resolved]
  - Blood pressure fluctuation [Unknown]
  - Confusional state [Unknown]
  - Arthralgia [Not Recovered/Not Resolved]
  - Blood pressure systolic increased [Unknown]
  - Oedema peripheral [Unknown]
  - Hallucination [Unknown]
  - Psychiatric symptom [Not Recovered/Not Resolved]
  - Groin infection [Not Recovered/Not Resolved]
  - Large intestine polyp [Unknown]
  - Suicidal ideation [Not Recovered/Not Resolved]
  - Depression [Unknown]
  - Body temperature decreased [Unknown]
  - Dry mouth [Not Recovered/Not Resolved]
  - Blood pressure diastolic abnormal [Unknown]

NARRATIVE: CASE EVENT DATE: 20151116
